FAERS Safety Report 5289386-6 (Version None)
Quarter: 2007Q2

REPORT INFORMATION
  Report Type: 
  Country: None (occurrence: None)
  Receive Date: 20070404
  Receipt Date: 20070404
  Transmission Date: 20071010
  Serious: Yes (Life-Threatening)
  Sender: FDA-Public Use
  Company Number: None

PATIENT
  Sex: Male
  Weight: 78.0187 kg

DRUGS (7)
  1. LENALIDOMIDE    15 MGS    CELGENE [Suspect]
     Indication: PROSTATE CANCER
     Dosage: 15 MGS  QD  PO
     Route: 048
     Dates: start: 20061114, end: 20070306
  2. DOCETAXEL    75 MG/M2    SANOFI-AVENTIS [Suspect]
     Indication: PROSTATE CANCER
     Dosage: 75 MG/M2   Q THREE WEEKS  IV DRIP
     Route: 041
     Dates: start: 20061114, end: 20070306
  3. TOPROL-XL [Concomitant]
  4. SIMVASTATIN [Concomitant]
  5. NORVASC [Concomitant]
  6. GLUCOTROL [Concomitant]
  7. LASIX [Concomitant]

REACTIONS (12)
  - BLOOD PRESSURE INCREASED [None]
  - DECREASED ACTIVITY [None]
  - DYSPNOEA [None]
  - ELECTROCARDIOGRAM T WAVE AMPLITUDE DECREASED [None]
  - ELECTROCARDIOGRAM T WAVE INVERSION [None]
  - FEELING OF BODY TEMPERATURE CHANGE [None]
  - HEART RATE INCREASED [None]
  - LUNG INFILTRATION [None]
  - PLEURAL EFFUSION [None]
  - PRODUCTIVE COUGH [None]
  - RESPIRATORY RATE INCREASED [None]
  - WHEEZING [None]
